FAERS Safety Report 23576743 (Version 1)
Quarter: 2024Q1

REPORT INFORMATION
  Report Type: Spontaneous
  Country: US (occurrence: US)
  Receive Date: 20240228
  Receipt Date: 20240228
  Transmission Date: 20240409
  Serious: No
  Sender: FDA-Public Use
  Company Number: US-PRIMUS-2023-US-006605

PATIENT
  Age: 84 Year
  Sex: Male
  Weight: 77.11 kg

DRUGS (15)
  1. SERNIVO [Suspect]
     Active Substance: BETAMETHASONE DIPROPIONATE
     Indication: Pruritus
     Dosage: USED INTERMITTENTLY; APPLY TOPICALLY AND MASSAGE ONTO AREAS OF ITCH TWICE A DAY AS NEEDED
     Route: 061
     Dates: start: 202203, end: 20230223
  2. VITAMIN E [Concomitant]
     Active Substance: .ALPHA.-TOCOPHEROL
  3. VITAMIN K [Concomitant]
     Active Substance: PHYTONADIONE
  4. VITAMIN D3 [Concomitant]
     Active Substance: CHOLECALCIFEROL
  5. BEET ROOT [Concomitant]
  6. CALCIUM CITRATE [Concomitant]
     Active Substance: CALCIUM CITRATE
  7. MAGNESIUM [Concomitant]
     Active Substance: MAGNESIUM
  8. ZINC [Concomitant]
     Active Substance: PYRITHIONE ZINC\ZINC\ZINC CHLORIDE
  9. ELIQUIS [Concomitant]
     Active Substance: APIXABAN
     Route: 065
  10. FISH OIL [Concomitant]
     Active Substance: FISH OIL
     Route: 065
  11. LOSARTAN [Concomitant]
     Active Substance: LOSARTAN
     Route: 065
  12. ASPIRIN [Concomitant]
     Active Substance: ASPIRIN
     Dosage: DAILY
  13. DEVICE [Suspect]
     Active Substance: DEVICE
     Indication: Pruritus
  14. VITAMIN B [Concomitant]
     Active Substance: VITAMIN B
  15. VITAMIN C [Concomitant]
     Active Substance: ASCORBIC ACID

REACTIONS (4)
  - Application site atrophy [Not Recovered/Not Resolved]
  - Application site bruise [Not Recovered/Not Resolved]
  - Off label use [Unknown]
  - Condition aggravated [Unknown]
